FAERS Safety Report 14087484 (Version 9)
Quarter: 2019Q1

REPORT INFORMATION
  Report Type: Spontaneous
  Country: US (occurrence: US)
  Receive Date: 20171013
  Receipt Date: 20190227
  Transmission Date: 20190417
  Serious: Yes (Other)
  Sender: FDA-Public Use
  Company Number: PHEH2017US033289

PATIENT
  Sex: Female

DRUGS (4)
  1. LENVATINIB [Suspect]
     Active Substance: LENVATINIB
     Dosage: 18 MG, QD
     Route: 048
     Dates: start: 20171016, end: 20180110
  2. LENVATINIB [Suspect]
     Active Substance: LENVATINIB
     Dosage: 4 MG, QD
     Route: 048
     Dates: start: 20180125
  3. AFINITOR [Suspect]
     Active Substance: EVEROLIMUS
     Indication: RENAL CELL CARCINOMA
     Dosage: 5 MG, QD
     Route: 048
     Dates: end: 20180110
  4. LENVATINIB [Suspect]
     Active Substance: LENVATINIB
     Indication: RENAL CELL CARCINOMA
     Dosage: 4 MG, QD
     Route: 048
     Dates: start: 20171002

REACTIONS (19)
  - Renal cell carcinoma [Unknown]
  - Metastases to bone [Unknown]
  - Tongue injury [Unknown]
  - Movement disorder [Recovering/Resolving]
  - Gastrointestinal disorder [Unknown]
  - Decreased appetite [Recovered/Resolved]
  - Skin lesion [Unknown]
  - Bowel movement irregularity [Unknown]
  - Pain in extremity [Unknown]
  - Joint swelling [Unknown]
  - Dysphonia [Unknown]
  - Gait disturbance [Unknown]
  - Arthralgia [Recovered/Resolved]
  - Malignant neoplasm progression [Unknown]
  - Anaemia [Unknown]
  - Peripheral swelling [Unknown]
  - Fatigue [Recovering/Resolving]
  - Lethargy [Unknown]
  - Muscular weakness [Unknown]
